FAERS Safety Report 5170448-9 (Version None)
Quarter: 2006Q4

REPORT INFORMATION
  Report Type: 
  Country: None (occurrence: None)
  Receive Date: 20061212
  Receipt Date: 20061206
  Transmission Date: 20070319
  Serious: Yes (Hospitalization)
  Sender: FDA-Public Use
  Company Number: FR-ROXANE LABORATORIES, INC-2006-BP-14157RO

PATIENT
  Age: 3 Year
  Sex: Male

DRUGS (1)
  1. METHADONE HCL [Suspect]
     Indication: ACCIDENTAL EXPOSURE
     Dosage: ACCIDENTAL INGESTION
     Route: 048

REACTIONS (12)
  - ACCIDENTAL DRUG INTAKE BY CHILD [None]
  - ACCIDENTAL EXPOSURE [None]
  - APNOEA [None]
  - BLOOD GLUCOSE INCREASED [None]
  - BRADYPNOEA [None]
  - COMA [None]
  - CYANOSIS CENTRAL [None]
  - DEPRESSED LEVEL OF CONSCIOUSNESS [None]
  - DIABETIC HYPEROSMOLAR COMA [None]
  - HYPERGLYCAEMIA [None]
  - MIOSIS [None]
  - RESPIRATORY ACIDOSIS [None]
